FAERS Safety Report 16634345 (Version 4)
Quarter: 2019Q4

REPORT INFORMATION
  Report Type: Spontaneous
  Country: US (occurrence: US)
  Receive Date: 20190726
  Receipt Date: 20191023
  Transmission Date: 20200122
  Serious: Yes (Other)
  Sender: FDA-Public Use
  Company Number: US-GLAXOSMITHKLINE-US2019AMR132682

PATIENT
  Age: 80 Year
  Sex: Female
  Weight: 53.52 kg

DRUGS (1)
  1. NUCALA [Suspect]
     Active Substance: MEPOLIZUMAB
     Indication: ASTHMA
     Dosage: UNK, 2 DOSES 4 WEEKS A PART
     Route: 058
     Dates: start: 20190423, end: 20190619

REACTIONS (4)
  - Impaired healing [Recovering/Resolving]
  - Adverse drug reaction [Recovering/Resolving]
  - Haematuria [Recovered/Resolved]
  - Skin wound [Unknown]

NARRATIVE: CASE EVENT DATE: 20190619
